FAERS Safety Report 5693985-7 (Version None)
Quarter: 2008Q2

REPORT INFORMATION
  Report Type: 
  Country: None (occurrence: None)
  Receive Date: 20080403
  Receipt Date: 20080327
  Transmission Date: 20081010
  Serious: Yes (Hospitalization)
  Sender: FDA-Public Use
  Company Number: FR-GILEAD-2008-0015893

PATIENT
  Age: 63 Year
  Sex: Male

DRUGS (4)
  1. TRUVADA [Suspect]
     Indication: HIV INFECTION
     Route: 048
     Dates: end: 20080118
  2. NORVIR [Suspect]
  3. PREZISTA [Suspect]
     Route: 048
     Dates: start: 20071008
  4. SAVARINE [Suspect]
     Indication: PROPHYLAXIS
     Route: 048
     Dates: end: 20080122

REACTIONS (5)
  - ANAEMIA [None]
  - DEHYDRATION [None]
  - DIARRHOEA [None]
  - THROMBOCYTOPENIA [None]
  - VOMITING [None]
